FAERS Safety Report 7522558-6 (Version None)
Quarter: 2011Q2

REPORT INFORMATION
  Report Type: 
  Country: None (occurrence: None)
  Receive Date: 20110603
  Receipt Date: 20110502
  Transmission Date: 20111010
  Serious: No
  Sender: FDA-Public Use
  Company Number: US-BAYER-2011-038450

PATIENT
  Age: 24 Year
  Sex: Female
  Weight: 65 kg

DRUGS (1)
  1. ALEVE (CAPLET) [Suspect]
     Indication: BACK PAIN
     Dosage: 2 DF, ONCE
     Dates: start: 20110502, end: 20110502

REACTIONS (6)
  - PRURITUS [None]
  - THROAT TIGHTNESS [None]
  - STOMATITIS [None]
  - HYPERSENSITIVITY [None]
  - EYE PRURITUS [None]
  - CHEILITIS [None]
